FAERS Safety Report 21255387 (Version 2)
Quarter: 2022Q3

REPORT INFORMATION
  Report Type: Spontaneous
  Country: US (occurrence: US)
  Receive Date: 20220825
  Receipt Date: 20220906
  Transmission Date: 20221026
  Serious: Yes (Life-Threatening, Hospitalization, Other)
  Sender: FDA-Public Use
  Company Number: US-TEVA-2022-US-2066505

PATIENT
  Age: 51 Year
  Sex: Male

DRUGS (7)
  1. DIAZEPAM [Suspect]
     Active Substance: DIAZEPAM
     Indication: Symptomatic treatment
     Route: 042
  2. DIAZEPAM [Suspect]
     Active Substance: DIAZEPAM
     Indication: Drug withdrawal syndrome
  3. OLANZAPINE [Suspect]
     Active Substance: OLANZAPINE
     Indication: Product used for unknown indication
     Route: 065
  4. ONDANSETRON [Suspect]
     Active Substance: ONDANSETRON
     Indication: Symptomatic treatment
     Dosage: 4 MG OVER 1.5 H
     Route: 065
  5. ONDANSETRON [Suspect]
     Active Substance: ONDANSETRON
     Indication: Drug withdrawal syndrome
  6. FENTANYL [Suspect]
     Active Substance: FENTANYL
     Indication: Product used for unknown indication
     Dosage: USED FOR YEARS
     Route: 062
  7. OLANZAPINE\SAMIDORPHAN [Suspect]
     Active Substance: OLANZAPINE\SAMIDORPHAN
     Indication: Weight increased
     Dosage: RECEIVED ONCE
     Route: 048

REACTIONS (5)
  - Drug withdrawal syndrome [Recovered/Resolved]
  - Drug ineffective [Unknown]
  - Drug dependence [Recovered/Resolved]
  - Weight increased [Unknown]
  - Contraindicated product administered [Recovered/Resolved]
